FAERS Safety Report 4431130-6 (Version None)
Quarter: 2004Q3

REPORT INFORMATION
  Report Type: 
  Country: None (occurrence: None)
  Receive Date: 20040818
  Receipt Date: 20040812
  Transmission Date: 20050211
  Serious: Yes (Disabling)
  Sender: FDA-Public Use
  Company Number: 04-08-1166

PATIENT

DRUGS (6)
  1. METFORMIN HCL [Suspect]
     Indication: DIABETES MELLITUS
     Dosage: 500MG BD ORAL
     Route: 048
     Dates: start: 20040709, end: 20040716
  2. ASPIRIN [Concomitant]
  3. ATENOLOL [Concomitant]
  4. BENDROFLUAZIDE [Concomitant]
  5. ENALAPRIL [Concomitant]
  6. SIMVASTATIN [Concomitant]

REACTIONS (2)
  - HEADACHE [None]
  - VISUAL FIELD DEFECT [None]
